FAERS Safety Report 11710498 (Version 1)
Quarter: 2015Q4

REPORT INFORMATION
  Report Type: Spontaneous
  Country: US (occurrence: US)
  Receive Date: 20151104
  Receipt Date: 20151104
  Transmission Date: 20160304
  Serious: No
  Sender: FDA-Public Use
  Company Number: US-ELI_LILLY_AND_COMPANY-US201104004527

PATIENT
  Age: 73 Year
  Sex: Female

DRUGS (2)
  1. ANTI-PARKINSON DRUGS [Concomitant]
     Active Substance: UNSPECIFIED INGREDIENT
     Indication: PARKINSON^S DISEASE
  2. FORTEO [Suspect]
     Active Substance: TERIPARATIDE
     Indication: OSTEOPOROSIS
     Dosage: 20 UG, QD
     Dates: start: 20110312

REACTIONS (4)
  - Parkinson^s disease [Unknown]
  - Nausea [Unknown]
  - Tremor [Unknown]
  - Speech disorder [Unknown]

NARRATIVE: CASE EVENT DATE: 20110329
